FAERS Safety Report 16833019 (Version 2)
Quarter: 2019Q4

REPORT INFORMATION
  Report Type: Report from Study
  Country: US (occurrence: US)
  Receive Date: 20190920
  Receipt Date: 20191002
  Transmission Date: 20200122
  Serious: Yes (Hospitalization)
  Sender: FDA-Public Use
  Company Number: US-VELOXIS PHARMACEUTICALS-2019VELUS-000460

PATIENT
  Age: 46 Year
  Sex: Male
  Weight: 96.6 kg

DRUGS (1)
  1. ENVARSUS XR [Suspect]
     Active Substance: TACROLIMUS
     Indication: PROPHYLAXIS AGAINST TRANSPLANT REJECTION
     Dosage: 3 MG DAILY
     Route: 048
     Dates: start: 20190821, end: 20190826

REACTIONS (4)
  - Haematoma evacuation [Recovered/Resolved]
  - Weight increased [Recovered/Resolved]
  - Oedema peripheral [Recovered/Resolved]
  - Perinephric collection [Recovered/Resolved]

NARRATIVE: CASE EVENT DATE: 20190909
